FAERS Safety Report 23625884 (Version 1)
Quarter: 2024Q1

REPORT INFORMATION
  Report Type: Spontaneous
  Country: US (occurrence: US)
  Receive Date: 20240313
  Receipt Date: 20240313
  Transmission Date: 20240410
  Serious: Yes (Death)
  Sender: FDA-Public Use
  Company Number: ENDB23-02920

PATIENT
  Sex: Male
  Weight: 77.098 kg

DRUGS (3)
  1. XIAFLEX [Suspect]
     Active Substance: COLLAGENASE CLOSTRIDIUM HISTOLYTICUM
     Indication: Dupuytren^s contracture
     Dosage: UNK UNKNOWN, UNKNOWN (INJECTION ONE, RIGHT HAND RING FINGER)
     Route: 051
     Dates: start: 201805
  2. XIAFLEX [Suspect]
     Active Substance: COLLAGENASE CLOSTRIDIUM HISTOLYTICUM
     Dosage: UNK UNKNOWN, UNKNOWN (INJECTION ONE, RIGHT HAND LITTLE FINGER)
     Route: 051
     Dates: start: 2018
  3. XIAFLEX [Suspect]
     Active Substance: COLLAGENASE CLOSTRIDIUM HISTOLYTICUM
     Dosage: UNK UNKNOWN, UNKNOWN (LEFT HAND, RING AND LITTLE FINGERS)
     Route: 051
     Dates: start: 202107

REACTIONS (6)
  - Death [Fatal]
  - Inflammation [Not Recovered/Not Resolved]
  - Treatment failure [Unknown]
  - Dupuytren^s contracture [Unknown]
  - Disease recurrence [Unknown]
  - Wrong technique in product usage process [Unknown]

NARRATIVE: CASE EVENT DATE: 20180101
